FAERS Safety Report 8596431 (Version 2)
Quarter: 2013Q3

REPORT INFORMATION
  Report Type: Spontaneous
  Country: US (occurrence: US)
  Receive Date: 20120605
  Receipt Date: 20130720
  Transmission Date: 20140515
  Serious: Yes (Hospitalization, Other)
  Sender: FDA-Public Use
  Company Number: US-ASTRAZENECA-2012SE35634

PATIENT
  Age: 626 Month
  Sex: Female
  Weight: 106.6 kg

DRUGS (17)
  1. NEXIUM [Suspect]
     Indication: GASTROOESOPHAGEAL REFLUX DISEASE
     Route: 048
     Dates: start: 20050311
  2. NEXIUM [Suspect]
     Indication: DYSPEPSIA
     Route: 048
     Dates: start: 20050311
  3. NEXIUM [Suspect]
     Indication: GASTROOESOPHAGEAL REFLUX DISEASE
     Route: 048
     Dates: start: 200601, end: 20110129
  4. NEXIUM [Suspect]
     Indication: DYSPEPSIA
     Route: 048
     Dates: start: 200601, end: 20110129
  5. NEXIUM [Suspect]
     Indication: GASTROOESOPHAGEAL REFLUX DISEASE
     Route: 048
     Dates: start: 20110423
  6. NEXIUM [Suspect]
     Indication: DYSPEPSIA
     Route: 048
     Dates: start: 20110423
  7. PEPTO-BISMOL [Concomitant]
     Dosage: ON OCCASION AS NEEDED
  8. MYLANTA [Concomitant]
     Dosage: ON OCCASION AS NEEDED
  9. DIOVAN HCT [Concomitant]
     Dosage: 160-25 MG
  10. FUROSEMIDE [Concomitant]
  11. PROPO-N/ACETAM [Concomitant]
  12. ZYRTEC [Concomitant]
  13. DILTIAZEM CD [Concomitant]
  14. LISINOP/HCTZ [Concomitant]
  15. ADVAIR DISKUS [Concomitant]
     Dosage: 250/50 AND 500/50
  16. REPLIVA [Concomitant]
  17. XYZAL [Concomitant]

REACTIONS (25)
  - Fibula fracture [Unknown]
  - Myocardial infarction [Unknown]
  - Cardiac disorder [Unknown]
  - Dyspnoea [Unknown]
  - Postmenopausal haemorrhage [Unknown]
  - Diabetes mellitus [Unknown]
  - Diabetic retinopathy [Unknown]
  - Pancreatitis [Unknown]
  - Osteoporosis [Unknown]
  - Angina pectoris [Unknown]
  - Renal failure chronic [Unknown]
  - Multiple fractures [Unknown]
  - Osteopenia [Unknown]
  - Bone loss [Unknown]
  - Tooth loss [Unknown]
  - Adrenal insufficiency [Unknown]
  - Arthritis [Unknown]
  - Calcium deficiency [Unknown]
  - Rheumatoid arthritis [Unknown]
  - Gout [Unknown]
  - Vitamin D deficiency [Unknown]
  - Fall [Unknown]
  - Ankle fracture [Unknown]
  - Back pain [Unknown]
  - Tooth fracture [Unknown]
